FAERS Safety Report 9123723 (Version 1)
Quarter: 2013Q1

REPORT INFORMATION
  Report Type: Spontaneous
  Country: US (occurrence: US)
  Receive Date: 20130227
  Receipt Date: 20130227
  Transmission Date: 20140127
  Serious: Yes (Death)
  Sender: FDA-Public Use
  Company Number: US-PFIZER INC-2013070347

PATIENT
  Age: 72 Year
  Sex: Female

DRUGS (1)
  1. RAPAMUNE [Suspect]
     Dosage: 20 MG, 3X/DAY
     Dates: start: 20130102

REACTIONS (3)
  - Emphysema [Fatal]
  - Respiratory failure [Fatal]
  - Pulmonary fibrosis [Fatal]
